FAERS Safety Report 18344782 (Version 3)
Quarter: 2020Q4

REPORT INFORMATION
  Report Type: Spontaneous
  Country: US (occurrence: US)
  Receive Date: 20201005
  Receipt Date: 20201104
  Transmission Date: 20210114
  Serious: Yes (Other)
  Sender: FDA-Public Use
  Company Number: US-PFIZER INC-2020379010

PATIENT
  Age: 81 Year
  Sex: Female
  Weight: 54.43 kg

DRUGS (2)
  1. ESTRING [Suspect]
     Active Substance: ESTRADIOL
     Indication: ATROPHIC VULVOVAGINITIS
     Dosage: UNK
     Route: 067
     Dates: start: 20200908
  2. ESTRING [Suspect]
     Active Substance: ESTRADIOL
     Indication: URINARY TRACT INFECTION

REACTIONS (11)
  - Disease progression [Unknown]
  - Balance disorder [Not Recovered/Not Resolved]
  - Gait disturbance [Not Recovered/Not Resolved]
  - Contraindicated product administered [Unknown]
  - Anxiety [Not Recovered/Not Resolved]
  - Fall [Unknown]
  - Vaginal hyperplasia [Unknown]
  - Dementia Alzheimer^s type [Unknown]
  - Pica [Unknown]
  - Fungal infection [Unknown]
  - Feeling abnormal [Unknown]

NARRATIVE: CASE EVENT DATE: 202009
